FAERS Safety Report 6098044-X (Version None)
Quarter: 2009Q1

REPORT INFORMATION
  Report Type: 
  Country: None (occurrence: None)
  Receive Date: 20090227
  Receipt Date: 20090225
  Transmission Date: 20090719
  Serious: Yes (Death, Life-Threatening, Hospitalization)
  Sender: FDA-Public Use
  Company Number: PHHO2008DE04910

PATIENT
  Sex: Female
  Weight: 80.5 kg

DRUGS (9)
  1. RAD 666 RAD+TAB+PTR [Suspect]
     Indication: HEART TRANSPLANT
     Dosage: 0.75 MG, BID
     Route: 048
     Dates: start: 20080331, end: 20080410
  2. RAD 666 RAD+TAB+PTR [Suspect]
     Dosage: 0.75 MG, BID
     Route: 048
     Dates: start: 20080415
  3. CYCLOSPORINE [Interacting]
     Indication: HEART TRANSPLANT
     Dosage: 53 MG, BID
     Route: 042
     Dates: start: 20080328
  4. CYCLOSPORINE [Interacting]
     Dosage: 80 MG, BID
     Route: 042
     Dates: end: 20080422
  5. CYCLOSPORINE [Interacting]
     Dosage: 95 MG, BID
     Route: 042
  6. FLUVASTATIN (NGX) [Interacting]
     Dosage: 20 MG, QD
     Route: 048
     Dates: start: 20080402, end: 20080409
  7. PREDNISOLONE [Suspect]
     Indication: HEART TRANSPLANT
     Dosage: 65 MG, BID
     Route: 048
     Dates: start: 20080401
  8. PREDNISOLONE [Suspect]
     Dosage: 45 MG, BID
     Route: 048
     Dates: end: 20080422
  9. ANTI-THYMOCYTE GLOBULIN NOS [Suspect]

REACTIONS (20)
  - ANURIA [None]
  - ASPERGILLOSIS [None]
  - BLOOD CREATINE PHOSPHOKINASE INCREASED [None]
  - C-REACTIVE PROTEIN INCREASED [None]
  - CANDIDIASIS [None]
  - DRUG INTERACTION [None]
  - FUNGAL SEPSIS [None]
  - HYPOTENSION [None]
  - INCREASED UPPER AIRWAY SECRETION [None]
  - KLEBSIELLA INFECTION [None]
  - LIVEDO RETICULARIS [None]
  - METABOLIC DISORDER [None]
  - PERIPHERAL COLDNESS [None]
  - POLYNEUROPATHY [None]
  - RENAL FAILURE [None]
  - RHABDOMYOLYSIS [None]
  - SEPSIS [None]
  - STAPHYLOCOCCAL INFECTION [None]
  - TRACHEOSTOMY [None]
  - WEANING FAILURE [None]
